FAERS Safety Report 13348768 (Version 3)
Quarter: 2017Q2

REPORT INFORMATION
  Report Type: Spontaneous
  Country: JP (occurrence: JP)
  Receive Date: 20170320
  Receipt Date: 20170405
  Transmission Date: 20170830
  Serious: Yes (Death)
  Sender: FDA-Public Use
  Company Number: JP-ROCHE-1906730

PATIENT
  Age: 19 Year
  Sex: Male

DRUGS (5)
  1. TACROLIMUS HYDRATE [Suspect]
     Active Substance: TACROLIMUS
     Indication: PRODUCT USED FOR UNKNOWN INDICATION
     Route: 065
  2. PREDNISOLONE. [Suspect]
     Active Substance: PREDNISOLONE
     Indication: PRODUCT USED FOR UNKNOWN INDICATION
     Dosage: DOSAGE IS UNCERTAIN.
     Route: 065
  3. CELLCEPT [Suspect]
     Active Substance: MYCOPHENOLATE MOFETIL\MYCOPHENOLATE MOFETIL HYDROCHLORIDE
     Indication: GRAFT VERSUS HOST DISEASE
     Dosage: DOSAGE IS UNCERTAIN.
     Route: 048
  4. RITUXAN [Suspect]
     Active Substance: RITUXIMAB
     Indication: GRAFT VERSUS HOST DISEASE
     Dosage: DOSAGE IS UNCERTAIN.
     Route: 041
  5. ETANERCEPT [Concomitant]
     Active Substance: ETANERCEPT
     Dosage: DOSAGE IS UNCERTAIN.
     Route: 065

REACTIONS (5)
  - Carotid artery thrombosis [Fatal]
  - Arterial thrombosis [Fatal]
  - Mucormycosis [Fatal]
  - Off label use [Fatal]
  - Diabetes mellitus [Unknown]
